FAERS Safety Report 15272912 (Version 1)
Quarter: 2018Q3

REPORT INFORMATION
  Report Type: Spontaneous
  Country: US (occurrence: US)
  Receive Date: 20180813
  Receipt Date: 20180813
  Transmission Date: 20181010
  Serious: No
  Sender: FDA-Public Use
  Company Number: US-PURDUE-USA-2018-0143108

PATIENT
  Age: 44 Year
  Sex: Male

DRUGS (2)
  1. BUTRANS [Suspect]
     Active Substance: BUPRENORPHINE
     Indication: NECK PAIN
     Dosage: 10 MCG/HR, WEEKLY
     Route: 062
  2. BUTRANS [Suspect]
     Active Substance: BUPRENORPHINE
     Indication: BACK PAIN

REACTIONS (2)
  - Thermal burn [Unknown]
  - Drug intolerance [Unknown]
